FAERS Safety Report 5329025-9 (Version None)
Quarter: 2007Q2

REPORT INFORMATION
  Report Type: 
  Country: None (occurrence: None)
  Receive Date: 20070518
  Receipt Date: 20070508
  Transmission Date: 20071010
  Serious: Yes (Death, Other)
  Sender: FDA-Public Use
  Company Number: US-PFIZER INC-2006029962

PATIENT
  Sex: Male
  Weight: 140.6 kg

DRUGS (7)
  1. VIAGRA [Suspect]
     Indication: ERECTILE DYSFUNCTION
  2. NORTRIPTYLINE HCL [Concomitant]
     Route: 065
  3. WELLBUTRIN [Concomitant]
     Route: 065
  4. LASIX [Concomitant]
     Route: 065
  5. ARTANE [Concomitant]
     Route: 065
  6. MONTELUKAST SODIUM [Concomitant]
     Route: 065
  7. HYPNOTICS AND SEDATIVES [Concomitant]
     Route: 065

REACTIONS (14)
  - ACUTE RESPIRATORY DISTRESS SYNDROME [None]
  - BALANCE DISORDER [None]
  - CARDIAC FAILURE CONGESTIVE [None]
  - CEREBROVASCULAR ACCIDENT [None]
  - CHEST PAIN [None]
  - DIZZINESS [None]
  - DRUG INEFFECTIVE [None]
  - ERECTILE DYSFUNCTION [None]
  - FALL [None]
  - FLATULENCE [None]
  - PAIN [None]
  - PERICARDIAL EFFUSION [None]
  - PNEUMONIA ASPIRATION [None]
  - THROMBOSIS [None]
